FAERS Safety Report 9139323 (Version 1)
Quarter: 2013Q1

REPORT INFORMATION
  Report Type: Spontaneous
  Country: US (occurrence: US)
  Receive Date: 20130305
  Receipt Date: 20130305
  Transmission Date: 20140127
  Serious: No
  Sender: FDA-Public Use
  Company Number: US-ENDO PHARMACEUTICALS INC.-SPLN20110009

PATIENT
  Age: 10 None
  Sex: Female

DRUGS (1)
  1. SUPPRELIN LA [Suspect]
     Indication: PRECOCIOUS PUBERTY
     Route: 058
     Dates: start: 20110103, end: 20110128

REACTIONS (5)
  - Implant site inflammation [Recovered/Resolved]
  - Wound drainage [Unknown]
  - Incision site erythema [Unknown]
  - Device expulsion [Recovered/Resolved]
  - Implant site irritation [Recovered/Resolved]
